FAERS Safety Report 25626365 (Version 1)
Quarter: 2025Q3

REPORT INFORMATION
  Report Type: Spontaneous
  Country: CA (occurrence: CA)
  Receive Date: 20250731
  Receipt Date: 20250731
  Transmission Date: 20251021
  Serious: Yes (Hospitalization, Other)
  Sender: RANBAXY
  Company Number: CA-SUN PHARMACEUTICAL INDUSTRIES LTD-2025R1-520004

PATIENT
  Age: 44 Year
  Sex: Male

DRUGS (1)
  1. RISPERIDONE [Suspect]
     Active Substance: RISPERIDONE
     Indication: Psychotic disorder
     Dosage: 4 MILLIGRAM, DAILY
     Route: 065

REACTIONS (3)
  - Akathisia [Unknown]
  - Treatment noncompliance [Unknown]
  - Symptom recurrence [Unknown]
